FAERS Safety Report 14291410 (Version 1)
Quarter: 2017Q4

REPORT INFORMATION
  Report Type: Spontaneous
  Country: FR (occurrence: FR)
  Receive Date: 20171215
  Receipt Date: 20171215
  Transmission Date: 20180321
  Serious: Yes (Death)
  Sender: FDA-Public Use
  Company Number: FR-BAUSCH-BL-2017-033327

PATIENT

DRUGS (1)
  1. AMMONUL [Suspect]
     Active Substance: SODIUM BENZOATE\SODIUM PHENYLACETATE
     Indication: HYPERAMMONAEMIA
     Route: 065

REACTIONS (1)
  - Death [Fatal]

NARRATIVE: CASE EVENT DATE: 20171130
